FAERS Safety Report 7275256-0 (Version None)
Quarter: 2011Q1

REPORT INFORMATION
  Report Type: 
  Country: None (occurrence: None)
  Receive Date: 20110204
  Receipt Date: 20110131
  Transmission Date: 20110831
  Serious: Yes (Other)
  Sender: FDA-Public Use
  Company Number: BR-PFIZER INC-2011022605

PATIENT
  Age: 74 Year
  Sex: Male

DRUGS (1)
  1. FLUCONAZOLE [Suspect]
     Indication: GASTROINTESTINAL CANDIDIASIS
     Dosage: UNK
     Route: 048
     Dates: start: 20060101

REACTIONS (3)
  - GASTROINTESTINAL CANDIDIASIS [None]
  - MALAISE [None]
  - FATIGUE [None]
